FAERS Safety Report 16943300 (Version 1)
Quarter: 2019Q4

REPORT INFORMATION
  Report Type: Spontaneous
  Country: IT (occurrence: IT)
  Receive Date: 20191022
  Receipt Date: 20191022
  Transmission Date: 20200122
  Serious: Yes (Hospitalization)
  Sender: FDA-Public Use
  Company Number: IT-ROCHE-2442949

PATIENT
  Age: 54 Year
  Sex: Male

DRUGS (1)
  1. OCREVUS [Suspect]
     Active Substance: OCRELIZUMAB
     Indication: MULTIPLE SCLEROSIS
     Dosage: 300 MG INTRAVENOUS INFUSION FOLLOWED 2 WEEKS LATER BY A SECOND 300 MG INTRAVENOUS INFUSION FROM 01/N
     Route: 042
     Dates: start: 20181101, end: 20181115

REACTIONS (2)
  - Hydrocele [Recovered/Resolved]
  - Orchitis [Recovered/Resolved]

NARRATIVE: CASE EVENT DATE: 20190819
